FAERS Safety Report 4848863-X (Version None)
Quarter: 2005Q4

REPORT INFORMATION
  Report Type: 
  Country: None (occurrence: None)
  Receive Date: 20051208
  Receipt Date: 20050818
  Transmission Date: 20060501
  Serious: Yes (Hospitalization)
  Sender: FDA-Public Use
  Company Number: US-MERCK-0508USA03482

PATIENT
  Age: 65 Year
  Sex: Female
  Weight: 77 kg

DRUGS (7)
  1. VIOXX [Suspect]
     Route: 048
     Dates: start: 20000101, end: 20030901
  2. VIOXX [Suspect]
     Route: 048
     Dates: start: 19990701, end: 20031001
  3. VIOXX [Suspect]
     Route: 048
     Dates: start: 19990701, end: 20031001
  4. VIOXX [Suspect]
     Route: 048
     Dates: start: 19990701, end: 20031001
  5. GLUCOPHAGE [Concomitant]
     Route: 065
  6. DIOVAN [Concomitant]
     Route: 048
     Dates: start: 20030320, end: 20050330
  7. CELEBREX [Concomitant]
     Route: 048
     Dates: start: 20020901, end: 20020901

REACTIONS (3)
  - CEREBROVASCULAR ACCIDENT [None]
  - HYPERTENSION [None]
  - SICK SINUS SYNDROME [None]
